FAERS Safety Report 5118754-8 (Version None)
Quarter: 2006Q3

REPORT INFORMATION
  Report Type: 
  Country: None (occurrence: None)
  Receive Date: 20060927
  Receipt Date: 20060914
  Transmission Date: 20061208
  Serious: Yes (Hospitalization)
  Sender: FDA-Public Use
  Company Number: 2006106192

PATIENT
  Sex: Male
  Weight: 129 kg

DRUGS (1)
  1. LYRICA [Suspect]
     Indication: DIABETIC NEUROPATHY
     Dosage: 300 MG (1 IN 1 D), ORAL
     Route: 048
     Dates: start: 20051001, end: 20060828

REACTIONS (8)
  - ARTHRALGIA [None]
  - GAIT DISTURBANCE [None]
  - JOINT SWELLING [None]
  - MOVEMENT DISORDER [None]
  - NECK PAIN [None]
  - PHOTOPSIA [None]
  - SPEECH DISORDER [None]
  - TESTICULAR SWELLING [None]
